FAERS Safety Report 4766664-8 (Version None)
Quarter: 2005Q3

REPORT INFORMATION
  Report Type: 
  Country: None (occurrence: None)
  Receive Date: 20050908
  Receipt Date: 20050826
  Transmission Date: 20060218
  Serious: Yes (Death, Other)
  Sender: FDA-Public Use
  Company Number: 2004032207

PATIENT
  Age: 49 Year
  Sex: Male

DRUGS (14)
  1. NEURONTIN [Suspect]
     Indication: BACK PAIN
     Dosage: 300 MG (300 MG, 1 IN 1 D), ORAL
     Route: 048
     Dates: start: 19991222, end: 20020320
  2. NEURONTIN [Suspect]
     Indication: INSOMNIA
     Dosage: 300 MG (300 MG, 1 IN 1 D), ORAL
     Route: 048
     Dates: start: 19991222, end: 20020320
  3. NEURONTIN [Suspect]
     Indication: NEUROPATHY PERIPHERAL
     Dosage: 300 MG (300 MG, 1 IN 1 D), ORAL
     Route: 048
     Dates: start: 19991222, end: 20020320
  4. NEURONTIN [Suspect]
     Indication: RESTLESS LEGS SYNDROME
     Dosage: 300 MG (300 MG, 1 IN 1 D), ORAL
     Route: 048
     Dates: start: 19991222, end: 20020320
  5. VICODIN [Concomitant]
  6. CARDURA [Concomitant]
  7. CELEBREX [Concomitant]
  8. KLONOPIN [Concomitant]
  9. REMERON [Concomitant]
  10. VOLTAREN [Concomitant]
  11. KEFLEX [Concomitant]
  12. BETA-LACTAM ANTIBACTERIALS, PENCILLINS (BETA-LACTAM ANTIBACTERIALS, PE [Concomitant]
  13. TYLENOL W/ CODEINE NO. 3 [Concomitant]
  14. ULTRAM [Concomitant]

REACTIONS (8)
  - COMPLETED SUICIDE [None]
  - DRUG INEFFECTIVE [None]
  - INJURY ASPHYXIATION [None]
  - POLYTRAUMATISM [None]
  - SELF INJURIOUS BEHAVIOUR [None]
  - SOMNOLENCE [None]
  - STRESS [None]
  - TREATMENT NONCOMPLIANCE [None]
